FAERS Safety Report 11830472 (Version 4)
Quarter: 2016Q1

REPORT INFORMATION
  Report Type: Spontaneous
  Country: US (occurrence: US)
  Receive Date: 20151214
  Receipt Date: 20160115
  Transmission Date: 20160525
  Serious: No
  Sender: FDA-Public Use
  Company Number: US-JNJFOC-20151122412

PATIENT
  Sex: Female
  Weight: 69.4 kg

DRUGS (4)
  1. METAXALONE. [Concomitant]
     Active Substance: METAXALONE
     Indication: HYPOTONIA
     Route: 048
  2. MYLAN FENTANYL [Suspect]
     Active Substance: FENTANYL
     Indication: BACK PAIN
     Dosage: EVERY OTHER DAY
     Route: 062
  3. NUCYNTA [Concomitant]
     Active Substance: TAPENTADOL HYDROCHLORIDE
     Indication: PAIN
     Route: 065
  4. DURAGESIC [Suspect]
     Active Substance: FENTANYL
     Indication: BACK PAIN
     Dosage: EVERY OTHER DAY
     Route: 062

REACTIONS (3)
  - Neuropathy peripheral [Not Recovered/Not Resolved]
  - Back pain [Not Recovered/Not Resolved]
  - Overdose [Unknown]
